FAERS Safety Report 9916470 (Version 1)
Quarter: 2014Q1

REPORT INFORMATION
  Report Type: Spontaneous
  Country: SG (occurrence: SG)
  Receive Date: 20140221
  Receipt Date: 20140221
  Transmission Date: 20141002
  Serious: Yes (Other)
  Sender: FDA-Public Use
  Company Number: SG-BAYER-2014-023719

PATIENT
  Age: 70 Year
  Sex: Male

DRUGS (1)
  1. NEXAVAR TABLET 200 MG [Suspect]
     Indication: HEPATOCELLULAR CARCINOMA
     Dosage: DAILY DOSE 800 MG

REACTIONS (1)
  - Pulmonary embolism [None]
